FAERS Safety Report 7363701-1 (Version None)
Quarter: 2011Q1

REPORT INFORMATION
  Report Type: 
  Country: None (occurrence: None)
  Receive Date: 20110321
  Receipt Date: 20110215
  Transmission Date: 20110831
  Serious: No
  Sender: FDA-Public Use
  Company Number: A0913818A

PATIENT
  Sex: Female

DRUGS (1)
  1. PROMACTA [Suspect]
     Route: 048

REACTIONS (1)
  - PLATELET COUNT DECREASED [None]
